FAERS Safety Report 7356048-0 (Version None)
Quarter: 2011Q1

REPORT INFORMATION
  Report Type: 
  Country: None (occurrence: None)
  Receive Date: 20110310
  Receipt Date: 20110310
  Transmission Date: 20110831
  Serious: No
  Sender: FDA-Public Use
  Company Number: None

PATIENT
  Age: 52 Year
  Sex: Male
  Weight: 133.3575 kg

DRUGS (2)
  1. PIROXICAM [Suspect]
     Indication: MUSCULOSKELETAL DISORDER
     Dosage: 20MG ONCE A DAY
     Dates: start: 20110214, end: 20110218
  2. PIROXICAM [Suspect]
     Indication: INFLAMMATION
     Dosage: 20MG ONCE A DAY
     Dates: start: 20110214, end: 20110218

REACTIONS (5)
  - DIZZINESS [None]
  - UNEVALUABLE EVENT [None]
  - FEELING ABNORMAL [None]
  - NAUSEA [None]
  - MALAISE [None]
